APPROVED DRUG PRODUCT: MINOCYCLINE HYDROCHLORIDE
Active Ingredient: MINOCYCLINE HYDROCHLORIDE
Strength: EQ 100MG BASE
Dosage Form/Route: CAPSULE;ORAL
Application: A065470 | Product #003 | TE Code: AB
Applicant: AUROBINDO PHARMA LTD
Approved: Mar 11, 2008 | RLD: No | RS: No | Type: RX